FAERS Safety Report 7299363-1 (Version None)
Quarter: 2011Q1

REPORT INFORMATION
  Report Type: 
  Country: None (occurrence: None)
  Receive Date: 20110217
  Receipt Date: 20110210
  Transmission Date: 20110831
  Serious: Yes (Hospitalization, Congenital Anomaly)
  Sender: FDA-Public Use
  Company Number: A0913862A

PATIENT
  Sex: Male
  Weight: 3.4 kg

DRUGS (2)
  1. KALETRA [Suspect]
     Indication: ANTIVIRAL TREATMENT
     Dosage: 4TAB PER DAY
     Route: 064
  2. COMBIVIR [Suspect]
     Indication: ANTIVIRAL TREATMENT
     Dosage: 2TAB PER DAY
     Route: 064

REACTIONS (2)
  - GASTROINTESTINAL DISORDER [None]
  - DRUG EXPOSURE DURING PREGNANCY [None]
